FAERS Safety Report 17721734 (Version 1)
Quarter: 2020Q2

REPORT INFORMATION
  Report Type: Spontaneous
  Country: ES (occurrence: ES)
  Receive Date: 20200429
  Receipt Date: 20200429
  Transmission Date: 20200714
  Serious: Yes (Hospitalization)
  Sender: FDA-Public Use
  Company Number: ES-TEVA-2020-ES-1227334

PATIENT
  Age: 73 Year
  Sex: Male

DRUGS (5)
  1. PIPERACILINA TAZOBACTAM 4/0.5 G POLVO PARA SOLUCION INYECTABLE EFG, 1 [Suspect]
     Active Substance: PIPERACILLIN SODIUM\TAZOBACTAM SODIUM
     Indication: CORONAVIRUS INFECTION
     Dosage: C/24 H
     Route: 042
     Dates: start: 20200321, end: 20200405
  2. AZITROMICINA (7019A) [Suspect]
     Active Substance: AZITHROMYCIN
     Indication: CORONAVIRUS INFECTION
     Dosage: 500 MILLIGRAM DAILY;
     Route: 048
     Dates: start: 20200322, end: 20200407
  3. ERTAPENEM (2881A) [Suspect]
     Active Substance: ERTAPENEM
     Indication: CORONAVIRUS INFECTION
     Dosage: 1 GRAM DAILY;
     Route: 042
     Dates: start: 20200324, end: 20200403
  4. DOLQUINE 200 MG COMPRIMIDOS RECUBIERTOS, 30 COMPRIMIDOS [Suspect]
     Active Substance: HYDROXYCHLOROQUINE SULFATE
     Indication: PNEUMONIA
     Dosage: 400 MILLIGRAM DAILY;
     Route: 048
     Dates: start: 20200320, end: 20200407
  5. DOLQUINE 200 MG COMPRIMIDOS RECUBIERTOS, 30 COMPRIMIDOS [Suspect]
     Active Substance: HYDROXYCHLOROQUINE SULFATE
     Indication: CORONAVIRUS INFECTION

REACTIONS (3)
  - Haemorrhage [Recovering/Resolving]
  - Hepatitis acute [Recovering/Resolving]
  - Bradycardia [Recovering/Resolving]

NARRATIVE: CASE EVENT DATE: 20200403
